FAERS Safety Report 25230459 (Version 1)
Quarter: 2025Q2

REPORT INFORMATION
  Report Type: Spontaneous
  Country: US (occurrence: US)
  Receive Date: 20250423
  Receipt Date: 20250423
  Transmission Date: 20250717
  Serious: No
  Sender: SYMOGEN
  Company Number: US-PARTNER THERAPEUTICS-2024PTX00094

PATIENT
  Age: 5 Year
  Sex: Male

DRUGS (2)
  1. LEUKINE [Suspect]
     Active Substance: SARGRAMOSTIM
     Indication: Adrenal gland cancer
     Dosage: INJECT 0.78 ML (195 MCG TOTAL), ONCE DAILY AT THE SAME TIME EACH DAY
     Route: 058
  2. LEUKINE [Suspect]
     Active Substance: SARGRAMOSTIM
     Indication: Neoplasm malignant

REACTIONS (3)
  - Hospitalisation [Unknown]
  - Injection site haemorrhage [Unknown]
  - Injection site bruising [Unknown]

NARRATIVE: CASE EVENT DATE: 20240801
